FAERS Safety Report 8880227 (Version 5)
Quarter: 2013Q3

REPORT INFORMATION
  Report Type: Spontaneous
  Country: US (occurrence: US)
  Receive Date: 20121031
  Receipt Date: 20130905
  Transmission Date: 20140515
  Serious: Yes (Hospitalization, Other)
  Sender: FDA-Public Use
  Company Number: US-009507513-1210USA010428

PATIENT
  Sex: Female
  Weight: 96.6 kg

DRUGS (11)
  1. FOSAMAX [Suspect]
     Indication: OSTEOPOROSIS
     Dosage: 70 MG, UNK
     Route: 048
     Dates: start: 20060225, end: 20080423
  2. FOSAMAX [Suspect]
     Indication: OSTEOPENIA
  3. FOSAMAX [Suspect]
     Indication: OSTEOPOROSIS
     Dosage: 70 MG, UNK
     Route: 048
     Dates: start: 20080505, end: 20120720
  4. FOSAMAX [Suspect]
     Indication: OSTEOPENIA
  5. ALENDRONATE SODIUM [Suspect]
     Indication: OSTEOPOROSIS
     Dosage: 35 MG, UNK
     Route: 048
  6. ALENDRONATE SODIUM [Suspect]
     Indication: OSTEOPENIA
     Dosage: 70 MG, UNK
     Route: 048
  7. OXYCODONE [Concomitant]
     Indication: PAIN
     Dosage: UNK
     Dates: start: 200210, end: 200908
  8. MORPHINE SULFATE [Concomitant]
     Indication: PAIN
     Dosage: UNK
     Dates: start: 2012
  9. ROBAXIN [Concomitant]
     Indication: PAIN
     Dosage: UNK
     Dates: start: 200905, end: 201005
  10. PERCOCET [Concomitant]
     Indication: PAIN
     Dosage: UNK
     Dates: start: 20090515
  11. LEVOTHYROXINE SODIUM [Concomitant]
     Indication: HYPOTHYROIDISM
     Dosage: UNK
     Dates: start: 2004

REACTIONS (46)
  - Femur fracture [Unknown]
  - Intramedullary rod insertion [Unknown]
  - Ulna fracture [Unknown]
  - Open reduction of fracture [Unknown]
  - Open reduction of fracture [Unknown]
  - Open reduction of fracture [Unknown]
  - Bone graft [Unknown]
  - Bone graft [Unknown]
  - Knee arthroplasty [Unknown]
  - Spinal laminectomy [Unknown]
  - Surgery [Unknown]
  - Osteomyelitis [Unknown]
  - Treatment noncompliance [Unknown]
  - Device failure [Unknown]
  - Device failure [Unknown]
  - Low turnover osteopathy [Unknown]
  - Groin pain [Unknown]
  - Inflammation [Unknown]
  - Pain [Unknown]
  - Dyslipidaemia [Unknown]
  - Laceration [Unknown]
  - Essential hypertension [Unknown]
  - Major depression [Not Recovered/Not Resolved]
  - Spondylolisthesis [Unknown]
  - Nerve root compression [Unknown]
  - Intervertebral disc protrusion [Unknown]
  - Facet joint syndrome [Unknown]
  - Neuropathy peripheral [Unknown]
  - Neuralgia [Unknown]
  - Cellulitis [Not Recovered/Not Resolved]
  - Fracture nonunion [Unknown]
  - Oedema [Unknown]
  - Oedema peripheral [Unknown]
  - Limb discomfort [Unknown]
  - Arthralgia [Unknown]
  - Arthralgia [Unknown]
  - Osteoarthritis [Unknown]
  - Skin ulcer [Unknown]
  - Dry skin [Unknown]
  - Tenosynovitis [Unknown]
  - Osteomyelitis [Unknown]
  - Osteomyelitis [Unknown]
  - Tibia fracture [Unknown]
  - Cellulitis [Unknown]
  - Bone deformity [Unknown]
  - White blood cells urine positive [Unknown]
